FAERS Safety Report 17249837 (Version 1)
Quarter: 2020Q1

REPORT INFORMATION
  Report Type: Spontaneous
  Country: FR (occurrence: FR)
  Receive Date: 20200109
  Receipt Date: 20200109
  Transmission Date: 20200409
  Serious: Yes (Disabling)
  Sender: FDA-Public Use
  Company Number: FR-AUROBINDO-AUR-APL-2020-001051

PATIENT
  Age: 58 Year
  Sex: Female
  Weight: 66 kg

DRUGS (5)
  1. CARBOPLATIN. [Suspect]
     Active Substance: CARBOPLATIN
     Indication: OVARIAN CANCER
     Dosage: 647 MILLIGRAM
     Route: 042
     Dates: start: 20190410
  2. AVASTIN [Suspect]
     Active Substance: BEVACIZUMAB
     Indication: OVARIAN CANCER
     Dosage: 990 MILLIGRAM,21 DAY,990 MG PER TS TREATMENT EVERY 21 DAYS
     Route: 042
     Dates: start: 20190827
  3. PHLOROGLUCIN [Concomitant]
     Indication: ABDOMINAL PAIN
     Dosage: 160 MILLIGRAM,1 AS NECESSARY (80 MG*2/J SI BESOIN)
     Route: 048
     Dates: start: 20190410
  4. PACLITAXEL. [Suspect]
     Active Substance: PACLITAXEL
     Indication: OVARIAN CANCER
     Dosage: 294 MILLIGRAM
     Route: 042
     Dates: start: 20190410
  5. PARACETAMOL [Concomitant]
     Active Substance: ACETAMINOPHEN
     Indication: ABDOMINAL PAIN
     Dosage: 1000 MILLIGRAM,1 AS NECESSARY
     Route: 048
     Dates: start: 20190410

REACTIONS (3)
  - Visual acuity reduced [Not Recovered/Not Resolved]
  - Photophobia [Not Recovered/Not Resolved]
  - Dyschromatopsia [Not Recovered/Not Resolved]

NARRATIVE: CASE EVENT DATE: 20191116
